FAERS Safety Report 10045827 (Version 2)
Quarter: 2014Q1

REPORT INFORMATION
  Report Type: Spontaneous
  Country: FR (occurrence: FR)
  Receive Date: 20140328
  Receipt Date: 20140328
  Transmission Date: 20141002
  Serious: Yes (Death, Life-Threatening, Disabling, Other)
  Sender: FDA-Public Use
  Company Number: FR-ASTRAZENECA-2014SE14541

PATIENT
  Age: 2074 Week
  Sex: Male
  Weight: 78 kg

DRUGS (5)
  1. BRILIQUE [Suspect]
     Route: 048
     Dates: start: 20140210
  2. KARDEGIC [Suspect]
     Route: 048
     Dates: start: 20140210
  3. LOVENOX [Suspect]
     Route: 058
     Dates: start: 201402, end: 201402
  4. BIVALIRUDINE [Concomitant]
     Dates: start: 201402
  5. UNFRACTIONATED HEPARIN [Concomitant]
     Route: 042
     Dates: start: 20140210

REACTIONS (9)
  - Cerebral haemorrhage [Fatal]
  - Cerebral haematoma [Fatal]
  - Hemiparesis [Unknown]
  - Loss of consciousness [Unknown]
  - Intracranial pressure increased [Unknown]
  - Central nervous system necrosis [Unknown]
  - Pneumonia aspiration [Unknown]
  - Mydriasis [Unknown]
  - Incorrect dose administered [Unknown]
